FAERS Safety Report 6677336-7 (Version None)
Quarter: 2010Q2

REPORT INFORMATION
  Report Type: 
  Country: None (occurrence: None)
  Receive Date: 20100412
  Receipt Date: 20100323
  Transmission Date: 20101027
  Serious: Yes (Disabling, Other)
  Sender: FDA-Public Use
  Company Number: GXKR2010DK03519

PATIENT
  Sex: Female
  Weight: 72 kg

DRUGS (6)
  1. TERBINAFIN 1A PHARMA (NGX) [Suspect]
     Indication: ONYCHOMYCOSIS
     Dosage: 250 MG, QD
     Route: 048
     Dates: start: 20070802, end: 20090101
  2. SERTRALIN 1A FARMA (NGX) [Suspect]
     Indication: DEPRESSION
     Dosage: 50 MG, QD
     Route: 048
     Dates: start: 20081203, end: 20091001
  3. SEROPLEX [Suspect]
     Indication: DEPRESSION
     Dosage: 10 MG, UNK
     Route: 048
     Dates: start: 20070803, end: 20081203
  4. ZOVIRAX [Concomitant]
     Route: 048
     Dates: start: 20070801, end: 20090101
  5. SYMBICORT [Concomitant]
     Route: 055
  6. CIPRAMIL [Concomitant]

REACTIONS (13)
  - BACK PAIN [None]
  - BONE DISORDER [None]
  - BURNING SENSATION [None]
  - DECREASED VIBRATORY SENSE [None]
  - MUSCULOSKELETAL PAIN [None]
  - MUSCULOSKELETAL STIFFNESS [None]
  - OEDEMA PERIPHERAL [None]
  - PAIN IN EXTREMITY [None]
  - POLYNEUROPATHY [None]
  - TENDON CALCIFICATION [None]
  - TENDON DISORDER [None]
  - TENOLYSIS [None]
  - URGE INCONTINENCE [None]
